FAERS Safety Report 14628756 (Version 1)
Quarter: 2018Q1

REPORT INFORMATION
  Report Type: Spontaneous
  Country: FR (occurrence: FR)
  Receive Date: 20180313
  Receipt Date: 20180313
  Transmission Date: 20180509
  Serious: Yes (Other)
  Sender: FDA-Public Use
  Company Number: FR-009507513-1803FRA002501

PATIENT
  Sex: Male

DRUGS (1)
  1. CELESTENE [Suspect]
     Active Substance: BETAMETHASONE
     Indication: ORAL LICHEN PLANUS
     Dosage: 12 MG PER DAY I.E., 6 TABLETS DISSOLVED IN WATER/DAY
     Route: 048

REACTIONS (3)
  - Spinal fracture [Unknown]
  - Cushing^s syndrome [Unknown]
  - Off label use [Unknown]
